FAERS Safety Report 19170149 (Version 1)
Quarter: 2021Q2

REPORT INFORMATION
  Report Type: Spontaneous
  Country: US (occurrence: US)
  Receive Date: 20210422
  Receipt Date: 20210422
  Transmission Date: 20210717
  Serious: No
  Sender: FDA-Public Use
  Company Number: US-SOMERSET-2021-US-000020

PATIENT
  Age: 75 Year
  Sex: Male

DRUGS (10)
  1. DORZOLAMIDE HYDROCHLORIDE AND TIMOLOL MALEATE OPHTHALMIC [Suspect]
     Active Substance: DORZOLAMIDE HYDROCHLORIDE\TIMOLOL MALEATE
     Dates: start: 20201229, end: 20210210
  2. NO DRUG NAME [Concomitant]
     Active Substance: UNSPECIFIED INGREDIENT
     Route: 048
  3. NO DRUG NAME [Concomitant]
     Active Substance: UNSPECIFIED INGREDIENT
     Route: 048
  4. LUMIGAN [Concomitant]
     Active Substance: BIMATOPROST
  5. NO DRUG NAME [Concomitant]
     Active Substance: UNSPECIFIED INGREDIENT
     Route: 048
  6. NO DRUG NAME [Concomitant]
     Active Substance: UNSPECIFIED INGREDIENT
     Route: 048
  7. NO DRUG NAME [Concomitant]
     Active Substance: UNSPECIFIED INGREDIENT
     Route: 048
  8. NO DRUG NAME [Concomitant]
     Active Substance: UNSPECIFIED INGREDIENT
     Route: 048
  9. NO DRUG NAME [Concomitant]
     Active Substance: UNSPECIFIED INGREDIENT
     Route: 048
  10. AVODART [Concomitant]
     Active Substance: DUTASTERIDE
     Route: 048

REACTIONS (3)
  - Erythema of eyelid [Recovered/Resolved]
  - Eyelid oedema [Recovered/Resolved]
  - Pruritus [Recovered/Resolved]

NARRATIVE: CASE EVENT DATE: 20210101
